FAERS Safety Report 12404499 (Version 1)
Quarter: 2016Q2

REPORT INFORMATION
  Report Type: Spontaneous
  Country: US (occurrence: US)
  Receive Date: 20160525
  Receipt Date: 20160525
  Transmission Date: 20160815
  Serious: Yes (Other)
  Sender: FDA-Public Use
  Company Number: US-BAXALTA-2016BLT003516

PATIENT
  Sex: Female

DRUGS (2)
  1. BUMINATE [Suspect]
     Active Substance: ALBUMIN HUMAN
     Indication: DEVICE PRIMING
     Dosage: 250 ML, UNK
     Route: 042
     Dates: start: 20160516, end: 20160516
  2. PRISMASOL [Suspect]
     Active Substance: ANHYDROUS DEXTROSE\LACTIC ACID\MAGNESIUM CHLORIDE\POTASSIUM CHLORIDE\SODIUM BICARBONATE\SODIUM CHLORIDE
     Indication: PRODUCT USED FOR UNKNOWN INDICATION

REACTIONS (1)
  - Blood pressure decreased [Recovered/Resolved]

NARRATIVE: CASE EVENT DATE: 20160516
